FAERS Safety Report 7466400-0 (Version None)
Quarter: 2011Q2

REPORT INFORMATION
  Report Type: 
  Country: None (occurrence: None)
  Receive Date: 20110509
  Receipt Date: 20100723
  Transmission Date: 20111010
  Serious: No
  Sender: FDA-Public Use
  Company Number: US-ALEXION-A201000880

PATIENT
  Sex: Female

DRUGS (18)
  1. DRISDOL [Concomitant]
     Dosage: 50000 IU, QW
     Route: 048
  2. CLARITIN                           /00917501/ [Concomitant]
     Dosage: 10 MG, QD
     Route: 048
  3. SOLIRIS [Suspect]
     Indication: PAROXYSMAL NOCTURNAL HAEMOGLOBINURIA
     Dosage: 600 MG, QW
     Route: 042
     Dates: start: 20100603, end: 20100101
  4. FOLIC ACID [Concomitant]
     Dosage: 1 MG, BID
     Route: 048
  5. SOLIRIS [Suspect]
     Dosage: 900 MG, Q2W
     Route: 042
     Dates: start: 20100701
  6. SYNTHROID [Concomitant]
     Dosage: 75 UG, QD
     Route: 048
  7. MOTRIN [Concomitant]
     Dosage: 800 MG, TID
     Route: 048
  8. KLONOPIN [Concomitant]
     Dosage: 2 MG, PRN
     Route: 048
  9. VITAMIN E                          /00110501/ [Concomitant]
     Dosage: 800 IU, QD
     Route: 048
  10. K-DUR [Concomitant]
     Dosage: 20 MEQ, QD
     Route: 048
  11. VITAMIN B6 [Concomitant]
     Dosage: 50 MG, QD
     Route: 048
  12. ZYPREXA [Concomitant]
     Dosage: 20 MG, QD
     Route: 048
  13. NEURONTIN [Concomitant]
     Dosage: 300 MG, 2 CAPSULES TID
     Route: 048
  14. PRISTIQ [Concomitant]
     Dosage: 100 MG, QD
     Route: 048
  15. ZYVOX [Concomitant]
     Dosage: 600 MG, BID
     Route: 048
  16. BUMEX [Concomitant]
     Dosage: 1 MG, QD
     Route: 048
  17. BENTYL [Concomitant]
     Dosage: 20 MG, BID
     Route: 048
  18. ESTRACE [Concomitant]
     Dosage: 1 MG, QD
     Route: 048

REACTIONS (4)
  - NAUSEA [None]
  - VOMITING [None]
  - HEADACHE [None]
  - URINARY TRACT INFECTION [None]
